FAERS Safety Report 21095380 (Version 2)
Quarter: 2022Q3

REPORT INFORMATION
  Report Type: Report from Study
  Country: NL (occurrence: NL)
  Receive Date: 20220718
  Receipt Date: 20220824
  Transmission Date: 20221027
  Serious: Yes (Life-Threatening, Hospitalization)
  Sender: FDA-Public Use
  Company Number: NL-PFIZER INC-PV202200019981

PATIENT
  Age: 52 Year
  Sex: Female

DRUGS (2)
  1. DACOMITINIB [Suspect]
     Active Substance: DACOMITINIB
     Indication: Cervix carcinoma
     Dosage: 45 MG, 1X/DAY
     Route: 048
     Dates: start: 20220630
  2. LOPERAMIDE [Concomitant]
     Active Substance: LOPERAMIDE
     Dosage: 16 MG, AS NEEDED
     Dates: start: 20220707

REACTIONS (3)
  - Hypokalaemia [Recovered/Resolved]
  - Renal impairment [Recovering/Resolving]
  - Diarrhoea [Not Recovered/Not Resolved]

NARRATIVE: CASE EVENT DATE: 20220705
